FAERS Safety Report 4299755-9 (Version None)
Quarter: 2004Q1

REPORT INFORMATION
  Report Type: 
  Country: None (occurrence: None)
  Receive Date: 20040126
  Receipt Date: 20031112
  Transmission Date: 20041129
  Serious: No
  Sender: FDA-Public Use
  Company Number: USA031152433

PATIENT
  Age: 10 Year
  Sex: Male

DRUGS (2)
  1. STRATTERA [Suspect]
     Indication: TIC
     Dosage: 40 MG/DAY
     Dates: start: 20030901
  2. ADDERALL 10 [Concomitant]

REACTIONS (1)
  - TIC [None]
